FAERS Safety Report 18360197 (Version 1)
Quarter: 2020Q4

REPORT INFORMATION
  Report Type: Spontaneous
  Country: BA (occurrence: BA)
  Receive Date: 20201008
  Receipt Date: 20201008
  Transmission Date: 20210114
  Serious: Yes (Other)
  Sender: FDA-Public Use
  Company Number: BA-TEVA-2020-BA-1836140

PATIENT
  Age: 6 Year
  Sex: Female

DRUGS (2)
  1. SUMAMED FORTE [Suspect]
     Active Substance: AZITHROMYCIN ANHYDROUS
     Dosage: 5 MILLIGRAM/MILLILITERS DAILY;
     Route: 048
     Dates: start: 20200920, end: 20200922
  2. LINEX FORTE [Concomitant]
     Active Substance: PROBIOTICS NOS
     Dosage: 1  DAILY;
     Dates: start: 20200920, end: 20200922

REACTIONS (1)
  - Erythema [Recovered/Resolved]

NARRATIVE: CASE EVENT DATE: 20200921
